FAERS Safety Report 23965852 (Version 1)
Quarter: 2024Q2

REPORT INFORMATION
  Report Type: Spontaneous
  Country: US (occurrence: US)
  Receive Date: 20240612
  Receipt Date: 20240612
  Transmission Date: 20240716
  Serious: Yes (Death, Life-Threatening, Hospitalization, Other)
  Sender: FDA-Public Use
  Company Number: US-GILEAD-2024-0676226

PATIENT
  Age: 60 Year
  Sex: Female

DRUGS (1)
  1. TRODELVY [Suspect]
     Active Substance: SACITUZUMAB GOVITECAN-HZIY
     Indication: Triple negative breast cancer
     Dosage: 10 MG/KG ON DAY 1 (ONLY RECEIVED JUST ONE DOSE OF MEDICATION)
     Route: 065

REACTIONS (4)
  - Cardiomyopathy [Fatal]
  - Neutropenia [Recovered/Resolved]
  - Abdominal distension [Unknown]
  - Ejection fraction decreased [Unknown]
